FAERS Safety Report 25412116 (Version 1)
Quarter: 2025Q2

REPORT INFORMATION
  Report Type: Spontaneous
  Country: US (occurrence: US)
  Receive Date: 20250609
  Receipt Date: 20250609
  Transmission Date: 20250717
  Serious: Yes (Other)
  Sender: RANBAXY
  Company Number: US-SUN PHARMACEUTICAL INDUSTRIES INC-2025R1-511526

PATIENT
  Age: 75 Year
  Sex: Female

DRUGS (16)
  1. CITALOPRAM [Suspect]
     Active Substance: CITALOPRAM
     Indication: Vulvovaginal pain
     Route: 048
  2. CITALOPRAM [Suspect]
     Active Substance: CITALOPRAM
     Indication: Cystitis interstitial
  3. CLONAZEPAM [Suspect]
     Active Substance: CLONAZEPAM
     Indication: Vulvovaginal pain
     Route: 048
  4. CLONAZEPAM [Suspect]
     Active Substance: CLONAZEPAM
     Indication: Cystitis interstitial
  5. DULOXETINE [Suspect]
     Active Substance: DULOXETINE
     Indication: Cystitis interstitial
     Route: 048
  6. DULOXETINE [Suspect]
     Active Substance: DULOXETINE
     Indication: Vulvovaginal pain
  7. GABAPENTIN [Suspect]
     Active Substance: GABAPENTIN
     Indication: Vulvovaginal pain
     Route: 048
  8. GABAPENTIN [Suspect]
     Active Substance: GABAPENTIN
     Indication: Cystitis interstitial
  9. ESTRADIOL [Suspect]
     Active Substance: ESTRADIOL
     Indication: Cystitis interstitial
     Route: 065
  10. LIDOCAINE [Suspect]
     Active Substance: LIDOCAINE
     Indication: Vulvovaginal pain
  11. KETAMINE [Suspect]
     Active Substance: KETAMINE
     Indication: Vulvovaginal pain
     Route: 061
  12. KETAMINE [Suspect]
     Active Substance: KETAMINE
     Indication: Cystitis interstitial
  13. VALIUM [Suspect]
     Active Substance: DIAZEPAM
     Indication: Cystitis interstitial
     Route: 065
  14. VALIUM [Suspect]
     Active Substance: DIAZEPAM
     Indication: Vulvovaginal pain
  15. ESTRADIOL [Suspect]
     Active Substance: ESTRADIOL
  16. LIDOCAINE [Suspect]
     Active Substance: LIDOCAINE

REACTIONS (1)
  - Treatment failure [Unknown]
